FAERS Safety Report 7746932-8 (Version None)
Quarter: 2011Q3

REPORT INFORMATION
  Report Type: 
  Country: None (occurrence: None)
  Receive Date: 20110913
  Receipt Date: 20110830
  Transmission Date: 20111222
  Serious: No
  Sender: FDA-Public Use
  Company Number: PHHY2011BR59334

PATIENT
  Sex: Female

DRUGS (4)
  1. NIMODIPINE [Suspect]
  2. DIOCOVARSE [Suspect]
  3. INSULIN [Suspect]
  4. DIOVAN [Suspect]
     Indication: HYPERTENSION
     Dosage: 160 MG, UNK
     Route: 048

REACTIONS (1)
  - NO ADVERSE EVENT [None]
